FAERS Safety Report 19791075 (Version 2)
Quarter: 2021Q3

REPORT INFORMATION
  Report Type: Report from Study
  Country: US (occurrence: US)
  Receive Date: 20210906
  Receipt Date: 20210924
  Transmission Date: 20211014
  Serious: Yes (Other)
  Sender: FDA-Public Use
  Company Number: US-JNJFOC-20210704992

PATIENT
  Age: 49 Year
  Sex: Female
  Weight: 95.5 kg

DRUGS (2)
  1. SILDENAFIL CITRATE. [Concomitant]
     Active Substance: SILDENAFIL CITRATE
  2. SELEXIPAG [Suspect]
     Active Substance: SELEXIPAG
     Indication: PULMONARY ARTERIAL HYPERTENSION
     Dosage: BATCH/LOT NO.: 117381701 (NOT CAPTURED COMPLETELY UNDER BATCH/LOT NO. FIELD DUE TO SYSTEM RESTRICTIO
     Route: 048

REACTIONS (15)
  - Headache [Unknown]
  - Product dose omission issue [Unknown]
  - Drug ineffective [Unknown]
  - Vomiting [Unknown]
  - Haematemesis [Not Recovered/Not Resolved]
  - Cough [Unknown]
  - Insomnia [Unknown]
  - Blister [Unknown]
  - Diarrhoea [Unknown]
  - Localised infection [Unknown]
  - Dyspnoea [Unknown]
  - Abdominal pain upper [Unknown]
  - Myalgia [Unknown]
  - Pain in extremity [Unknown]
  - Pain in jaw [Unknown]

NARRATIVE: CASE EVENT DATE: 20210629
